FAERS Safety Report 24532050 (Version 2)
Quarter: 2024Q4

REPORT INFORMATION
  Report Type: Spontaneous
  Country: US (occurrence: US)
  Receive Date: 20241022
  Receipt Date: 20241118
  Transmission Date: 20250115
  Serious: Yes (Other)
  Sender: AMNEAL
  Company Number: US-AMNEAL PHARMACEUTICALS-2024-AMRX-03806

PATIENT
  Age: 14 Year
  Sex: Female
  Weight: 58.957 kg

DRUGS (1)
  1. ADRENACLICK [Suspect]
     Active Substance: EPINEPHRINE
     Indication: Hypersensitivity
     Dosage: 0.30 MILLIGRAM
     Route: 030
     Dates: start: 20241009, end: 20241009

REACTIONS (3)
  - Device malfunction [Unknown]
  - Needle issue [Unknown]
  - No adverse event [Unknown]

NARRATIVE: CASE EVENT DATE: 20241009
